FAERS Safety Report 5293741-8 (Version None)
Quarter: 2007Q2

REPORT INFORMATION
  Report Type: 
  Country: None (occurrence: None)
  Receive Date: 20070411
  Receipt Date: 20070402
  Transmission Date: 20071010
  Serious: Yes (Other)
  Sender: FDA-Public Use
  Company Number: JP-PFIZER INC-2007017347

PATIENT
  Sex: Female

DRUGS (7)
  1. ZYRTEC [Suspect]
     Indication: ECZEMA
     Dosage: DAILY DOSE:10MG
     Route: 048
     Dates: start: 20060425, end: 20070101
  2. PRAVASTATIN SODIUM [Concomitant]
     Route: 048
  3. ALFACALCIDOL [Concomitant]
     Route: 048
  4. CALCIUM LACTATE [Concomitant]
     Route: 048
  5. DIPYRIDAMOLE [Concomitant]
     Route: 048
  6. RANITIDINE HYDROCHLORIDE [Concomitant]
  7. BETAMETHASONE BUTYRATE PROPIONATE [Concomitant]
     Indication: ECZEMA

REACTIONS (1)
  - BRADYCARDIA [None]
